FAERS Safety Report 6839021-8 (Version None)
Quarter: 2010Q3

REPORT INFORMATION
  Report Type: 
  Country: None (occurrence: None)
  Receive Date: 20100713
  Receipt Date: 20090421
  Transmission Date: 20110219
  Serious: No
  Sender: FDA-Public Use
  Company Number: US-PFIZER INC-2007038815

PATIENT
  Sex: Female
  Weight: 95.454 kg

DRUGS (5)
  1. CHANTIX [Suspect]
     Dosage: 0.5 MG, 1X/DAY
     Route: 048
     Dates: start: 20070411
  2. NORVASC [Concomitant]
  3. TOPROL-XL [Concomitant]
  4. METFORMIN [Concomitant]
  5. MELATONIN [Concomitant]

REACTIONS (4)
  - ABNORMAL DREAMS [None]
  - DRUG INEFFECTIVE [None]
  - HEADACHE [None]
  - NIGHTMARE [None]
